FAERS Safety Report 6031703-3 (Version None)
Quarter: 2009Q1

REPORT INFORMATION
  Report Type: 
  Country: None (occurrence: None)
  Receive Date: 20090108
  Receipt Date: 20090106
  Transmission Date: 20090719
  Serious: Yes (Hospitalization)
  Sender: FDA-Public Use
  Company Number: A0762573A

PATIENT
  Age: 71 Year
  Sex: Male
  Weight: 93.2 kg

DRUGS (6)
  1. AVODART [Suspect]
     Route: 048
     Dates: start: 20080101
  2. NIASPAN [Suspect]
     Indication: BLOOD CHOLESTEROL INCREASED
     Dosage: 1000MGD PER DAY
     Route: 048
     Dates: start: 20050101
  3. NIASPAN [Suspect]
     Indication: BLOOD CHOLESTEROL INCREASED
     Route: 048
     Dates: start: 20080101, end: 20080603
  4. HYTRIN [Suspect]
  5. METOPROLOL [Concomitant]
  6. VALSARTAN [Concomitant]

REACTIONS (2)
  - ATRIAL FIBRILLATION [None]
  - FLUSHING [None]
